FAERS Safety Report 5097077-X (Version None)
Quarter: 2006Q3

REPORT INFORMATION
  Report Type: 
  Country: None (occurrence: None)
  Receive Date: 20060901
  Receipt Date: 20060822
  Transmission Date: 20061208
  Serious: Yes (Life-Threatening, Disabling, Other)
  Sender: FDA-Public Use
  Company Number: 2006103129

PATIENT
  Age: 76 Year
  Sex: Male
  Weight: 76.2 kg

DRUGS (11)
  1. LYRICA [Suspect]
     Indication: NEURALGIA
     Dosage: 150 MG (50 MG, 3 IN 1 D), ORAL
     Route: 048
     Dates: start: 20060501, end: 20060702
  2. ASPIRIN [Concomitant]
  3. FLUDROCORTISONE ACETATE [Concomitant]
  4. LANSOPRAZOLE [Concomitant]
  5. MOVICOL (MACROGOL, POTASSIUM CHLORIDE, SOIDUM BICARBONATE, SODIUM CHLO [Concomitant]
  6. SALBUTAMOL (SALBUTAMOL) [Concomitant]
  7. ANTI-ASTHMATICS (ANTI-ASTHMATICS) [Concomitant]
  8. SIMVASTATIN [Concomitant]
  9. TEMAZEPAM [Concomitant]
  10. TIOTROPIUM BROMIDE (TIOTROPIUM BROMIDE) [Concomitant]
  11. TOLTERODINE TARTRATE [Concomitant]

REACTIONS (2)
  - HYPERCAPNIA [None]
  - LOSS OF CONSCIOUSNESS [None]
